FAERS Safety Report 7524412-2 (Version None)
Quarter: 2011Q2

REPORT INFORMATION
  Report Type: 
  Country: None (occurrence: None)
  Receive Date: 20110606
  Receipt Date: 20110531
  Transmission Date: 20111010
  Serious: Yes (Death, Hospitalization)
  Sender: FDA-Public Use
  Company Number: PHHY2010MX68511

PATIENT
  Sex: Female

DRUGS (1)
  1. DIOVAN HCT [Suspect]
     Indication: HYPERTENSION
     Dosage: 1 DF (160 MG VALSARTAN AND 12.5 MG HYDROCHLOROTHIAZIDE)
     Route: 048

REACTIONS (4)
  - CONCOMITANT DISEASE PROGRESSION [None]
  - CARDIAC DISORDER [None]
  - FLUID RETENTION [None]
  - CARDIOMEGALY [None]
